FAERS Safety Report 21727767 (Version 1)
Quarter: 2022Q4

REPORT INFORMATION
  Report Type: Spontaneous
  Country: US (occurrence: US)
  Receive Date: 20221214
  Receipt Date: 20221214
  Transmission Date: 20230113
  Serious: No
  Sender: FDA-Public Use
  Company Number: US-PFIZER INC-202201364456

PATIENT
  Age: 72 Year
  Sex: Male
  Weight: 95.25 kg

DRUGS (4)
  1. PAXLOVID [Interacting]
     Active Substance: NIRMATRELVIR\RITONAVIR
     Indication: COVID-19 treatment
     Dosage: [PF-07321332 300 MG]/[RITONAVIR 100 MG]; 2X/DAY
     Dates: start: 20221203, end: 20221207
  2. JANTOVEN [Interacting]
     Active Substance: WARFARIN SODIUM
     Indication: Aortic valve replacement
     Dosage: 10MG ON MONDAYS,WEDNESDAYS,FRIDAYS;5MG OTHER 4 DAYS/WEEK
  3. JANTOVEN [Interacting]
     Active Substance: WARFARIN SODIUM
     Dosage: 10 MG
     Dates: start: 20221205, end: 20221209
  4. SIMVASTATIN [Suspect]
     Active Substance: SIMVASTATIN
     Dosage: UNK
     Dates: end: 20221203

REACTIONS (3)
  - Drug interaction [Not Recovered/Not Resolved]
  - International normalised ratio decreased [Not Recovered/Not Resolved]
  - Contraindicated product administered [Unknown]

NARRATIVE: CASE EVENT DATE: 20221203
